FAERS Safety Report 7823429-8 (Version None)
Quarter: 2011Q4

REPORT INFORMATION
  Report Type: 
  Country: None (occurrence: None)
  Receive Date: 20111014
  Receipt Date: 20111005
  Transmission Date: 20120403
  Serious: Yes (Hospitalization, Other)
  Sender: FDA-Public Use
  Company Number: 2010US004111

PATIENT
  Age: 40 Year
  Sex: Male

DRUGS (1)
  1. PROGRAF [Suspect]
     Indication: PANCREAS TRANSPLANT
     Dosage: 1 MG, BID, ORAL
     Route: 048
     Dates: start: 20071001

REACTIONS (15)
  - OFF LABEL USE [None]
  - ACUTE RESPIRATORY DISTRESS SYNDROME [None]
  - CONSTIPATION [None]
  - PANCREAS TRANSPLANT REJECTION [None]
  - BACTERIAL DISEASE CARRIER [None]
  - PANCREATIC INSUFFICIENCY [None]
  - DRUG INEFFECTIVE [None]
  - GASTROINTESTINAL PERFORATION [None]
  - PULMONARY OEDEMA [None]
  - PANCREATITIS [None]
  - LEUKOCYTOSIS [None]
  - HAEMOGLOBIN DECREASED [None]
  - MUSCULOSKELETAL PAIN [None]
  - URINARY TRACT INFECTION [None]
  - INFECTION [None]
